FAERS Safety Report 14163733 (Version 1)
Quarter: 2017Q4

REPORT INFORMATION
  Report Type: Other
  Country: US (occurrence: US)
  Receive Date: 20171106
  Receipt Date: 20171106
  Transmission Date: 20180321
  Serious: Yes (Other)
  Sender: FDA-Public Use
  Company Number: US-THE PROACTIV LLC-2033315

PATIENT
  Age: 65 Year
  Sex: Female

DRUGS (2)
  1. THIS PROACTIV CUSTOMER TAKES UNDISCLOSED MEDICATIONS. [Concomitant]
  2. PROACTIV REFINING MASK [Suspect]
     Active Substance: SULFUR
     Indication: ACNE
     Route: 061
     Dates: start: 201710, end: 20171011

REACTIONS (1)
  - Angioedema [Recovering/Resolving]

NARRATIVE: CASE EVENT DATE: 20171012
